FAERS Safety Report 7516955-2 (Version None)
Quarter: 2011Q2

REPORT INFORMATION
  Report Type: 
  Country: None (occurrence: None)
  Receive Date: 20110601
  Receipt Date: 20110517
  Transmission Date: 20111010
  Serious: Yes (Disabling)
  Sender: FDA-Public Use
  Company Number: GB-WATSON-2011-07361

PATIENT
  Age: 70 Year
  Sex: Male
  Weight: 79 kg

DRUGS (13)
  1. AMLODIPINE [Concomitant]
     Indication: HYPERTENSION
     Dosage: 10MG UNKNOWN INTERVAL
     Route: 048
  2. ATENOLOL [Concomitant]
     Indication: HYPERTENSION
     Dosage: 50MG UNKNOWN INTERVAL
     Route: 048
  3. PHOS-EX [Concomitant]
     Indication: PRODUCT USED FOR UNKNOWN INDICATION
     Dosage: 2 DF, TID
     Route: 048
  4. ALFACALCIDOL [Concomitant]
     Indication: PROPHYLAXIS
     Dosage: TWO 0.25MCG DOSES DAILY
     Route: 048
  5. FUROSEMIDE [Concomitant]
     Indication: PRODUCT USED FOR UNKNOWN INDICATION
     Dosage: 40MG UNKNOWN INTERVAL
     Route: 048
  6. OMEPRAZOLE [Suspect]
     Indication: PRODUCT USED FOR UNKNOWN INDICATION
     Dosage: 20MG UNKNOWN INTERVAL
     Route: 048
  7. FEBUXOSTAT [Suspect]
     Indication: GOUT
     Dosage: 40MG UNKNOWN INTERVAL
     Route: 048
     Dates: start: 20110201, end: 20110309
  8. FERROUS SULPHATE                   /00023503/ [Concomitant]
     Indication: PRODUCT USED FOR UNKNOWN INDICATION
     Dosage: 200 MG, BID
     Route: 048
  9. OMEPRAZOLE [Concomitant]
     Indication: PRODUCT USED FOR UNKNOWN INDICATION
     Dosage: 20MG UNKNOWN INTERVAL
     Route: 048
  10. SIMVASTATIN [Concomitant]
     Indication: PRODUCT USED FOR UNKNOWN INDICATION
     Dosage: 20MG UNKNOWN INTERVAL
     Route: 048
  11. CANDESARTAN CILEXETIL [Concomitant]
     Indication: HYPERTENSION
     Dosage: 8MG UNKNOWN INTERVAL
     Route: 048
  12. DARBEPOETIN ALFA [Concomitant]
     Indication: PRODUCT USED FOR UNKNOWN INDICATION
     Dosage: 30 MCG, 1/WEEK
     Route: 065
  13. DOXAZOSIN MESYLATE [Concomitant]
     Indication: HYPERTENSION
     Dosage: 8 MG, BID
     Route: 048

REACTIONS (1)
  - RENAL FAILURE [None]
